FAERS Safety Report 8869651 (Version 1)
Quarter: 2012Q4

REPORT INFORMATION
  Report Type: 
  Country: US (occurrence: US)
  Receive Date: 20121026
  Receipt Date: 20121026
  Transmission Date: 20130627
  Serious: No
  Sender: FDA-Public Use
  Company Number: US-AMGEN-USASP2012043179

PATIENT
  Age: 50 Year

DRUGS (2)
  1. ENBREL [Suspect]
     Indication: ARTHROPATHY
     Dosage: 50 mg, qwk
     Route: 058
     Dates: start: 20091216
  2. PIROXICAM [Concomitant]
     Dosage: UNK

REACTIONS (1)
  - Injection site bruising [Unknown]
